FAERS Safety Report 4590880-1 (Version None)
Quarter: 2005Q1

REPORT INFORMATION
  Report Type: 
  Country: None (occurrence: None)
  Receive Date: 20050225
  Receipt Date: 20040628
  Transmission Date: 20050727
  Serious: No
  Sender: FDA-Public Use
  Company Number: US-GLAXOSMITHKLINE-A0516618A

PATIENT
  Age: 50 Year
  Sex: Male
  Weight: 78.6 kg

DRUGS (3)
  1. ZIAGEN [Suspect]
     Indication: HIV INFECTION
     Dosage: 300MG TWICE PER DAY
     Route: 048
     Dates: start: 20040618
  2. VIREAD [Concomitant]
     Route: 048
  3. AZT [Concomitant]
     Route: 048

REACTIONS (8)
  - ARTHROPATHY [None]
  - BRONCHOSPASM [None]
  - COUGH [None]
  - DYSPNOEA [None]
  - HEADACHE [None]
  - HYPERSENSITIVITY [None]
  - MYALGIA [None]
  - PYREXIA [None]
